FAERS Safety Report 9289002 (Version 1)
Quarter: 2013Q2

REPORT INFORMATION
  Report Type: Spontaneous
  Country: US (occurrence: None)
  Receive Date: 20130509
  Receipt Date: 20130509
  Transmission Date: 20140414
  Serious: Yes (Other)
  Sender: FDA-Public Use
  Company Number: 1706440

PATIENT
  Age: 71 Year
  Sex: Female

DRUGS (15)
  1. DEXMEDETOMIDINE HYDROCHLORIDE [Suspect]
     Indication: HYPERTENSION
     Route: 041
  2. FELODIPINE [Suspect]
     Indication: HYPERTENSION
  3. LEVOTHYROXINE SODIUM [Suspect]
     Indication: HYPERTHYROIDISM
  4. FENTANYL [Concomitant]
  5. PROPOFOL [Concomitant]
  6. ROCURONIUM [Concomitant]
  7. MIDAZOLAM [Concomitant]
  8. ARIPIPRAZOLE [Concomitant]
  9. SEVOFLURANE [Concomitant]
  10. REMIFENTANIL [Concomitant]
  11. (LACTATED RINGER) [Concomitant]
  12. (HYDROXYETHYLSTARCH) [Concomitant]
  13. (BLOOD CELLS, PACKED HUMAN) [Concomitant]
  14. PLASMA, FRESH FROZEN [Concomitant]
  15. (OTHER BLOOD PRODUCTS) [Concomitant]

REACTIONS (3)
  - Hypernatraemia [None]
  - Respiratory acidosis [None]
  - Polyuria [None]
